FAERS Safety Report 8048208-0 (Version None)
Quarter: 2012Q1

REPORT INFORMATION
  Report Type: 
  Country: None (occurrence: None)
  Receive Date: 20120117
  Receipt Date: 20120109
  Transmission Date: 20120608
  Serious: Yes (Hospitalization, Other)
  Sender: FDA-Public Use
  Company Number: US-BAYER-2011-049708

PATIENT
  Age: 18 Year
  Sex: Female
  Weight: 106.12 kg

DRUGS (7)
  1. YAZ [Suspect]
     Dosage: UNK
     Dates: start: 20070601, end: 20080701
  2. DROSPIRENONE AND ETHINYL ESTRADIOL [Suspect]
     Dosage: UNK
     Dates: start: 20091001
  3. BACLOFEN [Concomitant]
     Dosage: UNK
     Route: 048
     Dates: start: 20090521
  4. LORTAB [Concomitant]
     Dosage: UNK
     Route: 048
     Dates: start: 20090521
  5. SYNTHROID [Concomitant]
     Dosage: 100 MCG/24HR, UNK
  6. YASMIN [Suspect]
     Dosage: UNK
     Dates: start: 20090601, end: 20090901
  7. HYDROCODONE BITARTRATE + ACETAMINOPHEN [Concomitant]
     Dosage: UNK
     Route: 048
     Dates: start: 20090311

REACTIONS (4)
  - GALLBLADDER INJURY [None]
  - INJURY [None]
  - CHOLELITHIASIS [None]
  - PAIN [None]
